FAERS Safety Report 11036560 (Version 2)
Quarter: 2016Q1

REPORT INFORMATION
  Report Type: Report from Study
  Country: BE (occurrence: BE)
  Receive Date: 20150416
  Receipt Date: 20160316
  Transmission Date: 20160525
  Serious: Yes (Other)
  Sender: FDA-Public Use
  Company Number: BE-ROCHE-1562729

PATIENT
  Age: 84 Year
  Sex: Male

DRUGS (3)
  1. LUCENTIS [Suspect]
     Active Substance: RANIBIZUMAB
     Dosage: LEFT EYE RECEIVED 9 RANIBIZUMAB INJECTIONS
     Route: 050
  2. HYTRIN [Concomitant]
     Active Substance: TERAZOSIN HYDROCHLORIDE
  3. LUCENTIS [Suspect]
     Active Substance: RANIBIZUMAB
     Indication: NEOVASCULAR AGE-RELATED MACULAR DEGENERATION
     Dosage: RIGHT EYE RECEIVED 19 RANIBIZUMAB INJECTIONS
     Route: 050

REACTIONS (8)
  - Detachment of retinal pigment epithelium [Recovering/Resolving]
  - Eye haemorrhage [Unknown]
  - Therapeutic response decreased [Unknown]
  - Subretinal fluid [Not Recovered/Not Resolved]
  - Retinal neovascularisation [Unknown]
  - Visual acuity reduced [Not Recovered/Not Resolved]
  - Subretinal fibrosis [Unknown]
  - Disease recurrence [Unknown]
